FAERS Safety Report 5698170-0 (Version None)
Quarter: 2008Q2

REPORT INFORMATION
  Report Type: 
  Country: None (occurrence: None)
  Receive Date: 20080403
  Receipt Date: 20080321
  Transmission Date: 20081010
  Serious: Yes (Hospitalization, Disabling)
  Sender: FDA-Public Use
  Company Number: 000359

PATIENT
  Age: 40 Year
  Sex: Female

DRUGS (5)
  1. BUSULFEX [Suspect]
     Indication: STEM CELL TRANSPLANT
     Dosage: 31.2 ML, INTRAVENOUS
     Route: 042
     Dates: start: 20070713, end: 20070714
  2. FLUDARABINE PHOSPHATE [Suspect]
  3. METHOTREXATE [Suspect]
  4. ITRACONAZOLE [Suspect]
  5. GANCICLOVIR [Concomitant]

REACTIONS (14)
  - ACINETOBACTER INFECTION [None]
  - ACUTE GRAFT VERSUS HOST DISEASE [None]
  - ANOREXIA [None]
  - CYSTITIS HAEMORRHAGIC [None]
  - CYTOMEGALOVIRUS ANTIGEN POSITIVE [None]
  - LIVER DISORDER [None]
  - MALAISE [None]
  - MUCOUS MEMBRANE DISORDER [None]
  - NAUSEA [None]
  - PSEUDOMEMBRANOUS COLITIS [None]
  - SEPSIS [None]
  - STAPHYLOCOCCAL SEPSIS [None]
  - STOMATITIS [None]
  - VOMITING [None]
